FAERS Safety Report 24812687 (Version 1)
Quarter: 2025Q1

REPORT INFORMATION
  Report Type: Other
  Country: US (occurrence: US)
  Receive Date: 20250107
  Receipt Date: 20250107
  Transmission Date: 20250409
  Serious: Yes (Death, Hospitalization, Other)
  Sender: AVEVA DRUG DELIVERY SYSTEMS INC.
  Company Number: US-AVEVA-001575

PATIENT
  Sex: Female

DRUGS (7)
  1. CLONIDINE [Suspect]
     Active Substance: CLONIDINE
     Indication: Product used for unknown indication
     Route: 065
  2. ALPRAZOLAM [Suspect]
     Active Substance: ALPRAZOLAM
     Indication: Product used for unknown indication
     Route: 065
  3. CLONAZEPAM [Suspect]
     Active Substance: CLONAZEPAM
     Indication: Product used for unknown indication
     Route: 065
  4. DIPHENHYDRAMINE [Suspect]
     Active Substance: DIPHENHYDRAMINE
     Indication: Product used for unknown indication
     Route: 065
  5. ESZOPICLONE [Suspect]
     Active Substance: ESZOPICLONE
     Indication: Product used for unknown indication
     Route: 065
  6. FERULIC ACID [Suspect]
     Active Substance: FERULIC ACID
     Indication: Product used for unknown indication
     Route: 065
  7. QUETIAPINE [Suspect]
     Active Substance: QUETIAPINE
     Indication: Product used for unknown indication
     Route: 065

REACTIONS (2)
  - Completed suicide [Fatal]
  - Cardio-respiratory arrest [Fatal]
